FAERS Safety Report 25621904 (Version 1)
Quarter: 2025Q3

REPORT INFORMATION
  Report Type: Spontaneous
  Country: US (occurrence: US)
  Receive Date: 20250730
  Receipt Date: 20250730
  Transmission Date: 20251021
  Serious: Yes (Death, Hospitalization)
  Sender: MYLAN
  Company Number: US-MYLANLABS-2025M1062858

PATIENT
  Age: 66 Year
  Sex: Male

DRUGS (8)
  1. DOXYCYCLINE [Suspect]
     Active Substance: DOXYCYCLINE
     Indication: Cerebral malaria
  2. DOXYCYCLINE [Suspect]
     Active Substance: DOXYCYCLINE
     Route: 042
  3. DOXYCYCLINE [Suspect]
     Active Substance: DOXYCYCLINE
     Route: 042
  4. DOXYCYCLINE [Suspect]
     Active Substance: DOXYCYCLINE
  5. CEFTRIAXONE [Suspect]
     Active Substance: CEFTRIAXONE
     Indication: Cerebral malaria
  6. CEFTRIAXONE [Suspect]
     Active Substance: CEFTRIAXONE
     Route: 065
  7. CEFTRIAXONE [Suspect]
     Active Substance: CEFTRIAXONE
     Route: 065
  8. CEFTRIAXONE [Suspect]
     Active Substance: CEFTRIAXONE

REACTIONS (1)
  - Drug ineffective [Fatal]
